FAERS Safety Report 4708859-5 (Version None)
Quarter: 2005Q3

REPORT INFORMATION
  Report Type: 
  Country: None (occurrence: None)
  Receive Date: 20050707
  Receipt Date: 20050622
  Transmission Date: 20060218
  Serious: Yes (Hospitalization, Other)
  Sender: FDA-Public Use
  Company Number: 2005087341

PATIENT
  Sex: Female
  Weight: 70.3075 kg

DRUGS (7)
  1. BEXTRA [Suspect]
     Indication: PAIN
  2. CELEBREX [Suspect]
     Indication: PAIN
  3. BACLOFEN [Suspect]
     Indication: MULTIPLE SCLEROSIS
  4. VIOXX [Suspect]
     Indication: PAIN
  5. REBIF [Suspect]
     Indication: MULTIPLE SCLEROSIS
     Dates: start: 20040901
  6. BIAXIN [Suspect]
     Indication: ILL-DEFINED DISORDER
  7. SKELAXIN [Suspect]
     Indication: ILL-DEFINED DISORDER

REACTIONS (7)
  - BLOOD PRESSURE FLUCTUATION [None]
  - CHEST PAIN [None]
  - DRUG INEFFECTIVE [None]
  - HEART RATE IRREGULAR [None]
  - HEPATIC CYST [None]
  - MULTIPLE SCLEROSIS [None]
  - NAUSEA [None]
